FAERS Safety Report 4596181-X (Version None)
Quarter: 2005Q1

REPORT INFORMATION
  Report Type: 
  Country: None (occurrence: None)
  Receive Date: 20050225
  Receipt Date: 20050214
  Transmission Date: 20050727
  Serious: Yes (Other)
  Sender: FDA-Public Use
  Company Number: HQWYE207917JUL04

PATIENT

DRUGS (6)
  1. PREMARIN [Suspect]
     Indication: HORMONE REPLACEMENT THERAPY
     Dosage: ORAL
     Route: 048
     Dates: start: 19630101, end: 20010101
  2. ESTRADERM [Suspect]
     Indication: HORMONE REPLACEMENT THERAPY
     Dosage: ORAL
     Route: 048
     Dates: start: 19800101, end: 20010101
  3. TOPROL-XL [Concomitant]
  4. ACETYLSALICYLIC ACID SRT [Concomitant]
  5. ALTACE [Concomitant]
  6. ZOCOR [Concomitant]

REACTIONS (4)
  - BREAST CANCER FEMALE [None]
  - CHEST PAIN [None]
  - PALPITATIONS [None]
  - VASCULAR BYPASS GRAFT [None]
